FAERS Safety Report 8430193-0 (Version None)
Quarter: 2012Q2

REPORT INFORMATION
  Report Type: 
  Country: None (occurrence: None)
  Receive Date: 20120612
  Receipt Date: 20120601
  Transmission Date: 20120825
  Serious: Yes (Hospitalization)
  Sender: FDA-Public Use
  Company Number: JP-VERTEX PHARMACEUTICALS INC.-AE-2012-008221

PATIENT
  Age: 64 Year
  Sex: Female

DRUGS (9)
  1. TELAVIC (TELAPREVIR) [Suspect]
     Indication: HEPATITIS C
     Route: 048
     Dates: start: 20120329, end: 20120509
  2. REBETOL [Concomitant]
     Route: 048
     Dates: start: 20120419, end: 20120501
  3. TELAVIC (TELAPREVIR) [Suspect]
     Route: 048
     Dates: start: 20120510, end: 20120529
  4. FERROUS SULFATE TAB [Concomitant]
     Route: 048
     Dates: start: 20120329
  5. PEG-INTRON [Concomitant]
     Indication: HEPATITIS C
     Route: 051
     Dates: start: 20120329, end: 20120529
  6. ALLEGRA [Concomitant]
     Route: 048
     Dates: start: 20120330, end: 20120418
  7. L-CARTIN [Concomitant]
     Route: 048
     Dates: start: 20120329
  8. REBETOL [Concomitant]
     Indication: HEPATITIS C
     Route: 048
     Dates: start: 20120329, end: 20120418
  9. REBETOL [Concomitant]
     Route: 048
     Dates: start: 20120502, end: 20120516

REACTIONS (1)
  - ENANTHEMA [None]
